FAERS Safety Report 8513226-2 (Version None)
Quarter: 2012Q3

REPORT INFORMATION
  Report Type: 
  Country: None (occurrence: None)
  Receive Date: 20120716
  Receipt Date: 20120711
  Transmission Date: 20120928
  Serious: Yes (Life-Threatening, Other)
  Sender: FDA-Public Use
  Company Number: FR-ABBOTT-12P-056-0955054-00

PATIENT
  Sex: Male

DRUGS (4)
  1. ABACAVIR SULFATE/LAMIVUDINE [Suspect]
     Indication: MATERNAL EXPOSURE TIMING UNSPECIFIED
     Route: 064
  2. RETROVIR [Suspect]
     Indication: MATERNAL EXPOSURE TIMING UNSPECIFIED
     Route: 064
  3. KALETRA [Suspect]
     Indication: MATERNAL EXPOSURE TIMING UNSPECIFIED
     Route: 064
  4. RETROVIR [Suspect]
     Indication: PROPHYLAXIS AGAINST HIV INFECTION
     Route: 015
     Dates: start: 20120626, end: 20120626

REACTIONS (11)
  - ANAEMIA [None]
  - THROMBOCYTOPENIA [None]
  - APPARENT DEATH [None]
  - LEUKOPENIA [None]
  - ILL-DEFINED DISORDER [None]
  - LACTIC ACIDOSIS [None]
  - HEPATIC ENZYME INCREASED [None]
  - RENAL FAILURE [None]
  - FOETAL DISTRESS SYNDROME [None]
  - FOETAL EXPOSURE DURING PREGNANCY [None]
  - C-REACTIVE PROTEIN INCREASED [None]
